FAERS Safety Report 7915892-9 (Version None)
Quarter: 2011Q4

REPORT INFORMATION
  Report Type: 
  Country: None (occurrence: None)
  Receive Date: 20111115
  Receipt Date: 20111109
  Transmission Date: 20120403
  Serious: Yes (Hospitalization, Other)
  Sender: FDA-Public Use
  Company Number: US-ALLERGAN-1112546US

PATIENT
  Age: 54 Year
  Sex: Female

DRUGS (5)
  1. MULTIPLE VITAMINS [Concomitant]
  2. ASPIRIN [Concomitant]
  3. RESTASIS [Suspect]
     Indication: DRY EYE
     Dosage: 2 GTT, BID
     Route: 047
     Dates: start: 20110912, end: 20110920
  4. FLAXSEED OIL [Concomitant]
  5. IRON [Concomitant]

REACTIONS (4)
  - PALPITATIONS [None]
  - CHEST DISCOMFORT [None]
  - HOT FLUSH [None]
  - DYSPNOEA [None]
